FAERS Safety Report 9306513 (Version 1)
Quarter: 2013Q2

REPORT INFORMATION
  Report Type: Spontaneous
  Country: US (occurrence: None)
  Receive Date: 20130506
  Receipt Date: 20130506
  Transmission Date: 20140414
  Serious: Yes (Hospitalization, Other)
  Sender: FDA-Public Use
  Company Number: 2013035677

PATIENT
  Sex: Male

DRUGS (1)
  1. CARIMUNE (IMMUNE GLOBULIN INTRAVENOUS (HUMAN) [Suspect]
     Dates: start: 2004

REACTIONS (5)
  - Myocardial infarction [None]
  - Myocarditis [None]
  - Asthenia [None]
  - Gait disturbance [None]
  - Musculoskeletal stiffness [None]
